FAERS Safety Report 20392781 (Version 1)
Quarter: 2022Q1

REPORT INFORMATION
  Report Type: Spontaneous
  Country: US (occurrence: US)
  Receive Date: 20220128
  Receipt Date: 20220128
  Transmission Date: 20220424
  Serious: No
  Sender: FDA-Public Use
  Company Number: US-TAKEDA-2022TUS005104

PATIENT
  Sex: Male
  Weight: 70 kg

DRUGS (2)
  1. HYQVIA [Suspect]
     Active Substance: HUMAN IMMUNOGLOBULIN G\HYALURONIDASE RECOMBINANT HUMAN
     Indication: Evans syndrome
     Dosage: 50 GRAM, MONTHLY
     Route: 058
     Dates: start: 20180327
  2. HYQVIA [Suspect]
     Active Substance: HUMAN IMMUNOGLOBULIN G\HYALURONIDASE RECOMBINANT HUMAN
     Indication: Hypogammaglobulinaemia
     Dosage: 50 GRAM
     Route: 058
     Dates: start: 20180327

REACTIONS (3)
  - Incorrect dose administered [Unknown]
  - Needle issue [Unknown]
  - No adverse event [Unknown]
